FAERS Safety Report 5532938-6 (Version None)
Quarter: 2007Q4

REPORT INFORMATION
  Report Type: 
  Country: None (occurrence: None)
  Receive Date: 20071204
  Receipt Date: 20071128
  Transmission Date: 20080405
  Serious: Yes (Hospitalization, Disabling, Other)
  Sender: FDA-Public Use
  Company Number: CA-NOVOPROD-269824

PATIENT
  Age: 78 Year
  Sex: Male
  Weight: 65 kg

DRUGS (6)
  1. NOVOMIX PENFILL 3 ML [Suspect]
     Indication: INSULIN-REQUIRING TYPE II DIABETES MELLITUS
     Dates: start: 20070425, end: 20070824
  2. METOPROLOL [Concomitant]
     Dosage: 25 MG, TID
     Route: 048
     Dates: start: 20061221
  3. ATACAND [Concomitant]
     Dosage: 16 MG, QD
     Route: 048
     Dates: start: 20070121
  4. ALTACE [Concomitant]
     Dosage: 10 MG, BID
     Route: 048
     Dates: start: 20070121
  5. LIPITOR [Concomitant]
     Dosage: 20 MG, QD
     Route: 048
     Dates: start: 20070121
  6. PLAVIX [Concomitant]
     Dosage: 75 MG, QD
     Route: 048
     Dates: start: 20070121

REACTIONS (1)
  - CEREBROVASCULAR ACCIDENT [None]
